FAERS Safety Report 7305979-6 (Version None)
Quarter: 2011Q1

REPORT INFORMATION
  Report Type: 
  Country: None (occurrence: None)
  Receive Date: 20110222
  Receipt Date: 20110221
  Transmission Date: 20110831
  Serious: Yes (Hospitalization)
  Sender: FDA-Public Use
  Company Number: GB-TEVA-229814ISR

PATIENT
  Age: 37 Year
  Sex: Female

DRUGS (1)
  1. WARFARIN [Suspect]

REACTIONS (5)
  - FOOD INTERACTION [None]
  - HAEMATOMA [None]
  - MUSCLE HAEMORRHAGE [None]
  - INTERNATIONAL NORMALISED RATIO INCREASED [None]
  - COAGULOPATHY [None]
